FAERS Safety Report 26012512 (Version 1)
Quarter: 2025Q4

REPORT INFORMATION
  Report Type: Spontaneous
  Country: US (occurrence: US)
  Receive Date: 20251107
  Receipt Date: 20251107
  Transmission Date: 20260118
  Serious: No
  Sender: ABBVIE
  Company Number: US-ABBVIE-6538892

PATIENT

DRUGS (1)
  1. BOTOX [Suspect]
     Active Substance: ONABOTULINUMTOXINA
     Indication: Skin cosmetic procedure
     Dosage: TIME INTERVAL: AS NECESSARY: DOSE: 45 UNIT, ?FORM STRENGTH: 100 UNIT
     Route: 030
     Dates: start: 202510, end: 202510

REACTIONS (2)
  - Poor quality product administered [Unknown]
  - Product contamination physical [Not Recovered/Not Resolved]

NARRATIVE: CASE EVENT DATE: 20251028
